FAERS Safety Report 9135394 (Version 1)
Quarter: 2013Q1

REPORT INFORMATION
  Report Type: Spontaneous
  Country: US (occurrence: US)
  Receive Date: 20130304
  Receipt Date: 20130304
  Transmission Date: 20140127
  Serious: No
  Sender: FDA-Public Use
  Company Number: US-ENDO PHARMACEUTICALS INC.-ENDC20110113

PATIENT
  Sex: Male

DRUGS (7)
  1. ENDOCET [Suspect]
     Indication: PAIN
     Dosage: 40/1300 MG
     Route: 048
  2. ENDOCET [Suspect]
     Indication: CROHN^S DISEASE
  3. TYLENOL PM [Suspect]
     Indication: INSOMNIA
     Dosage: UNKNOWN
     Route: 048
  4. CLONOPIN [Concomitant]
     Indication: PRODUCT USED FOR UNKNOWN INDICATION
     Dosage: LOW DOSE
     Route: 048
  5. DUROGESIC [Concomitant]
     Indication: PAIN
     Dosage: UNKNOWN
     Route: 062
  6. CRESTOR [Concomitant]
     Indication: PRODUCT USED FOR UNKNOWN INDICATION
     Route: 048
  7. WELLBUTRIN [Concomitant]
     Indication: DEPRESSION
     Route: 048

REACTIONS (6)
  - Red blood cell sedimentation rate abnormal [Unknown]
  - Anaemia [Unknown]
  - Vomiting [Recovered/Resolved]
  - Diarrhoea [Recovered/Resolved]
  - Asthenia [Not Recovered/Not Resolved]
  - Drug ineffective [Unknown]
